FAERS Safety Report 23948775 (Version 3)
Quarter: 2024Q3

REPORT INFORMATION
  Report Type: Spontaneous
  Country: GB (occurrence: GB)
  Receive Date: 20240607
  Receipt Date: 20240815
  Transmission Date: 20241017
  Serious: Yes (Other)
  Sender: CELLTRION
  Company Number: GB-CELLTRION INC.-2024GB007149

PATIENT

DRUGS (28)
  1. INFLIXIMAB [Suspect]
     Active Substance: INFLIXIMAB
     Indication: Crohn^s disease
     Dosage: REMSIMA 1 MG
     Route: 042
     Dates: start: 2023
  2. INFLIXIMAB [Suspect]
     Active Substance: INFLIXIMAB
     Dosage: (REMSIMA 1 MG BAXTER) 330 MG 6 WEEKLY, STRENGTH: 1 MG
     Route: 042
  3. INFLIXIMAB [Suspect]
     Active Substance: INFLIXIMAB
     Dosage: (REMSIMA 1 MG BAXTER) 330 MG 6 WEEKLY,  MG 6 WEEKLY, STRENGTH: 1 MG
     Route: 042
  4. INFLIXIMAB [Suspect]
     Active Substance: INFLIXIMAB
     Dosage: (REMSIMA 1 MG BAXTER) 330 MG 6 WEEKLY, STRENGTH: 5 MG/KG
     Route: 042
  5. INFLIXIMAB [Suspect]
     Active Substance: INFLIXIMAB
     Dosage: UNK
     Route: 042
  6. INFLIXIMAB [Suspect]
     Active Substance: INFLIXIMAB
     Dosage: UNK
     Route: 042
  7. INFLIXIMAB [Suspect]
     Active Substance: INFLIXIMAB
     Dosage: UNK
     Route: 042
  8. INFLIXIMAB [Suspect]
     Active Substance: INFLIXIMAB
     Dosage: UNK
     Route: 042
  9. INFLIXIMAB [Suspect]
     Active Substance: INFLIXIMAB
     Dosage: (REMSIMA 1 MG BAXTER) 330 MG 6 WEEKLY, STRENGTH: 1 MG
     Route: 042
  10. INFLIXIMAB [Suspect]
     Active Substance: INFLIXIMAB
     Dosage: (REMSIMA 1 MG BAXTER) 330 MG 6 WEEKLY, STRENGTH: 1 MG
     Route: 042
  11. SODIUM CHLORIDE [Suspect]
     Active Substance: SODIUM CHLORIDE
     Indication: Medication dilution
     Dosage: AT AN UNSPECIFIED DOSE 6 WEEKLY
     Route: 042
  12. SODIUM CHLORIDE [Suspect]
     Active Substance: SODIUM CHLORIDE
     Dosage: AT AN UNSPECIFIED DOSE 6 WEEKLY
     Route: 042
  13. SODIUM CHLORIDE [Suspect]
     Active Substance: SODIUM CHLORIDE
     Dosage: AT AN UNSPECIFIED DOSE 6 WEEKLY
     Route: 042
  14. SODIUM CHLORIDE [Suspect]
     Active Substance: SODIUM CHLORIDE
     Dosage: UNK
     Route: 042
  15. SODIUM CHLORIDE [Suspect]
     Active Substance: SODIUM CHLORIDE
     Dosage: UNK
     Route: 042
  16. SODIUM CHLORIDE [Suspect]
     Active Substance: SODIUM CHLORIDE
     Dosage: UNK
     Route: 042
  17. SODIUM CHLORIDE [Suspect]
     Active Substance: SODIUM CHLORIDE
     Dosage: UNK
     Route: 042
  18. SODIUM CHLORIDE [Suspect]
     Active Substance: SODIUM CHLORIDE
     Dosage: AT AN UNSPECIFIED DOSE 6 WEEKLY
     Route: 042
  19. SODIUM CHLORIDE [Suspect]
     Active Substance: SODIUM CHLORIDE
     Dosage: AT AN UNSPECIFIED DOSE 6 WEEKLY
     Route: 042
  20. WATER [Suspect]
     Active Substance: WATER
     Indication: Medication dilution
     Dosage: AT AN UNSPECIFIED DOSE 6 WEEKLY
     Route: 042
  21. WATER [Suspect]
     Active Substance: WATER
     Dosage: AT AN UNSPECIFIED DOSE 6 WEEKLY
     Route: 042
  22. WATER [Suspect]
     Active Substance: WATER
     Dosage: AT AN UNSPECIFIED DOSE 6 WEEKLY
     Route: 042
  23. WATER [Suspect]
     Active Substance: WATER
     Dosage: UNK
     Route: 042
  24. WATER [Suspect]
     Active Substance: WATER
     Dosage: UNK
     Route: 042
  25. WATER [Suspect]
     Active Substance: WATER
     Dosage: UNK
     Route: 042
  26. WATER [Suspect]
     Active Substance: WATER
     Dosage: AT AN UNSPECIFIED DOSE 6 WEEKLY
     Route: 042
  27. WATER [Suspect]
     Active Substance: WATER
     Dosage: AT AN UNSPECIFIED DOSE 6 WEEKLY
     Route: 042
  28. WATER [Suspect]
     Active Substance: WATER
     Dosage: AT AN UNSPECIFIED DOSE 6 WEEKLY
     Route: 042

REACTIONS (19)
  - Crohn^s disease [Recovered/Resolved]
  - Fistula [Not Recovered/Not Resolved]
  - Infected fistula [Recovered/Resolved]
  - Pain [Recovered/Resolved]
  - Haematochezia [Unknown]
  - Haemorrhoidal haemorrhage [Unknown]
  - Proctalgia [Unknown]
  - Faeces hard [Unknown]
  - Procedural site reaction [Recovered/Resolved]
  - Suture related complication [Unknown]
  - Mass [Unknown]
  - Dyschezia [Unknown]
  - Faeces soft [Unknown]
  - Anal fistula [Unknown]
  - Fistula discharge [Unknown]
  - Intentional dose omission [Recovered/Resolved]
  - Treatment delayed [Recovered/Resolved]
  - Intentional product use issue [Unknown]
  - Product dose omission issue [Recovered/Resolved]
